FAERS Safety Report 7243799-1 (Version None)
Quarter: 2011Q1

REPORT INFORMATION
  Report Type: 
  Country: None (occurrence: None)
  Receive Date: 20110125
  Receipt Date: 20110112
  Transmission Date: 20110831
  Serious: Yes (Other)
  Sender: FDA-Public Use
  Company Number: PHHY2010CA87581

PATIENT
  Age: 85 Year
  Sex: Female

DRUGS (2)
  1. DORZOLAMIDE [Suspect]
  2. TIMOLOL [Suspect]

REACTIONS (7)
  - FRACTURE REDUCTION [None]
  - WRIST FRACTURE [None]
  - SPINAL FRACTURE [None]
  - FALL [None]
  - NOCTURIA [None]
  - HAEMORRHAGE INTRACRANIAL [None]
  - DYSGEUSIA [None]
